FAERS Safety Report 9024875 (Version 1)
Quarter: 2012Q4

REPORT INFORMATION
  Report Type: Spontaneous
  Country: US (occurrence: None)
  Receive Date: 20121231
  Receipt Date: 20121231
  Transmission Date: 20130627
  Serious: Yes (Other)
  Sender: FDA-Public Use
  Company Number: UCM201212-000087

PATIENT
  Age: 10 Year
  Sex: Male

DRUGS (5)
  1. CLONIDINE HCL [Suspect]
     Dosage: 5 MCG/KG (MAX) 0.15 MG}
  2. ARGININE HYDROCHLORIDE [Suspect]
     Dosage: 5 mL/kg (max 30 g), intravenous
     Route: 042
  3. METHYLPHENIIDATE [Concomitant]
  4. CYPROHEPTADINE [Concomitant]
  5. VALSARTAN [Concomitant]

REACTIONS (4)
  - Haematuria [None]
  - Hypotension [None]
  - Aspartate aminotransferase increased [None]
  - Alanine aminotransferase increased [None]
